FAERS Safety Report 15180883 (Version 2)
Quarter: 2018Q3

REPORT INFORMATION
  Report Type: Spontaneous
  Country: AT (occurrence: AT)
  Receive Date: 20180723
  Receipt Date: 20180918
  Transmission Date: 20181010
  Serious: Yes (Hospitalization, Other)
  Sender: FDA-Public Use
  Company Number: AT-MYLANLABS-2018M1056010

PATIENT
  Sex: Male
  Weight: 80 kg

DRUGS (12)
  1. HALDOL [Suspect]
     Active Substance: HALOPERIDOL
     Dosage: 30 DF, QD
     Route: 065
     Dates: start: 20150706, end: 20150707
  2. OLANZAPINE. [Suspect]
     Active Substance: OLANZAPINE
     Indication: PRODUCT USED FOR UNKNOWN INDICATION
     Dosage: 20 MG, QD
     Dates: start: 20150416, end: 20150419
  3. OLANZAPINE. [Suspect]
     Active Substance: OLANZAPINE
     Dosage: 30 MG, QD
     Route: 065
     Dates: start: 20150420, end: 20150509
  4. HALDOL [Suspect]
     Active Substance: HALOPERIDOL
     Indication: PRODUCT USED FOR UNKNOWN INDICATION
     Dosage: 40 DF, QD
     Dates: start: 20150705, end: 20150706
  5. ZOLDEM [Suspect]
     Active Substance: ZOLPIDEM TARTRATE
     Indication: SLEEP DISORDER THERAPY
     Dosage: UNK
  6. RISPERDAL [Suspect]
     Active Substance: RISPERIDONE
     Dosage: UNK UNK, QD
     Dates: start: 20150702, end: 201507
  7. RISPERDAL [Suspect]
     Active Substance: RISPERIDONE
     Dosage: 6 MG, QD
     Dates: start: 201507
  8. FLUANXOL                           /00109702/ [Suspect]
     Active Substance: FLUPENTIXOL
     Indication: PRODUCT USED FOR UNKNOWN INDICATION
     Dosage: UNK
  9. LEPONEX [Suspect]
     Active Substance: CLOZAPINE
     Indication: PRODUCT USED FOR UNKNOWN INDICATION
     Dosage: UNK
  10. RISPERDAL [Suspect]
     Active Substance: RISPERIDONE
     Indication: PRODUCT USED FOR UNKNOWN INDICATION
     Dosage: 4 MG, QD
     Dates: start: 20150520, end: 2015
  11. RISPERDAL [Suspect]
     Active Substance: RISPERIDONE
     Dosage: 2 MG, QD
     Dates: start: 20150705, end: 201507
  12. SOLIAN [Suspect]
     Active Substance: AMISULPRIDE
     Indication: PRODUCT USED FOR UNKNOWN INDICATION
     Dosage: UNK

REACTIONS (31)
  - Hallucination, auditory [Not Recovered/Not Resolved]
  - Decreased appetite [Unknown]
  - Pain [Unknown]
  - Bladder injury [Unknown]
  - Depression [Unknown]
  - Palpitations [Unknown]
  - Parkinsonism [Unknown]
  - Tinnitus [Recovered/Resolved]
  - Fatigue [Unknown]
  - Suicidal ideation [Not Recovered/Not Resolved]
  - Disturbance in attention [Unknown]
  - Laziness [Unknown]
  - Feeling abnormal [Unknown]
  - Pruritus [Unknown]
  - Hypoaesthesia [Unknown]
  - Rash [Unknown]
  - Drug ineffective [Unknown]
  - Pyrexia [Unknown]
  - Suffocation feeling [Unknown]
  - General physical health deterioration [Unknown]
  - Weight increased [Unknown]
  - Heart rate increased [Unknown]
  - Treatment noncompliance [Unknown]
  - Dysgeusia [Unknown]
  - Wrong technique in product usage process [Unknown]
  - Obesity [Unknown]
  - Joint injury [Unknown]
  - Muscle twitching [Recovered/Resolved]
  - Odynophagia [Unknown]
  - Wound [Unknown]
  - Hospitalisation [Unknown]

NARRATIVE: CASE EVENT DATE: 2015
